FAERS Safety Report 8616466-7 (Version None)
Quarter: 2012Q3

REPORT INFORMATION
  Report Type: 
  Country: None (occurrence: None)
  Receive Date: 20120823
  Receipt Date: 20120816
  Transmission Date: 20120928
  Serious: Yes (Other)
  Sender: FDA-Public Use
  Company Number: US-009507513-1207USA009011

PATIENT

DRUGS (1)
  1. SAPHRIS [Suspect]
     Dosage: 1/4 OF A 5MG TABLET PER DAY

REACTIONS (4)
  - HYPOTENSION [None]
  - UNDERDOSE [None]
  - SYNCOPE [None]
  - INAPPROPRIATE SCHEDULE OF DRUG ADMINISTRATION [None]
